FAERS Safety Report 6176710-5 (Version None)
Quarter: 2009Q2

REPORT INFORMATION
  Report Type: 
  Country: None (occurrence: None)
  Receive Date: 20090501
  Receipt Date: 20090420
  Transmission Date: 20091009
  Serious: No
  Sender: FDA-Public Use
  Company Number: US-B.I. PHARMACEUTICALS,INC./RIDGEFIELD-2009-BP-04982BP

PATIENT
  Sex: Male

DRUGS (2)
  1. ZANTAC 150 [Suspect]
     Indication: HYPERPHAGIA
     Route: 048
     Dates: start: 20090301
  2. ZANTAC 150 [Suspect]
     Indication: POLYDIPSIA

REACTIONS (1)
  - PRURITUS [None]
